FAERS Safety Report 4396670-7 (Version None)
Quarter: 2004Q3

REPORT INFORMATION
  Report Type: 
  Country: None (occurrence: None)
  Receive Date: 20040708
  Receipt Date: 20040625
  Transmission Date: 20050211
  Serious: Yes (Other)
  Sender: FDA-Public Use
  Company Number: 2004218607DE

PATIENT
  Age: 65 Year
  Sex: Male

DRUGS (4)
  1. BEXTRA [Suspect]
     Indication: SPINAL OSTEOARTHRITIS
     Dosage: 20 MG, QD, ORAL
     Route: 048
     Dates: start: 20040603, end: 20040606
  2. EUGLUCON N (GLIBENCLAMIDE) [Concomitant]
  3. MEGLUCON [Concomitant]
  4. LORZAAR (LOSARTAN POTASSIUM) [Concomitant]

REACTIONS (6)
  - BLOOD GLUCOSE INCREASED [None]
  - DRUG HYPERSENSITIVITY [None]
  - GENERAL PHYSICAL HEALTH DETERIORATION [None]
  - OEDEMA PERIPHERAL [None]
  - RASH GENERALISED [None]
  - SWELLING FACE [None]
